FAERS Safety Report 24749119 (Version 1)
Quarter: 2024Q4

REPORT INFORMATION
  Report Type: Spontaneous
  Country: ES (occurrence: ES)
  Receive Date: 20241218
  Receipt Date: 20241218
  Transmission Date: 20250114
  Serious: Yes (Death)
  Sender: JOHNSON AND JOHNSON
  Company Number: ES-JNJFOC-20241215751

PATIENT
  Age: 85 Year
  Sex: Male

DRUGS (4)
  1. REMICADE [Suspect]
     Active Substance: INFLIXIMAB
     Indication: Muscular weakness
     Route: 041
  2. REMICADE [Suspect]
     Active Substance: INFLIXIMAB
     Indication: Myositis
  3. REMICADE [Suspect]
     Active Substance: INFLIXIMAB
     Indication: Myocarditis
  4. PEMBROLIZUMAB [Suspect]
     Active Substance: PEMBROLIZUMAB
     Indication: Gastric cancer
     Route: 065

REACTIONS (4)
  - Muscle fatigue [Fatal]
  - Aspiration [Fatal]
  - Therapeutic response unexpected [Unknown]
  - Off label use [Unknown]
